FAERS Safety Report 24160668 (Version 1)
Quarter: 2024Q3

REPORT INFORMATION
  Report Type: Spontaneous
  Country: MX (occurrence: MX)
  Receive Date: 20240801
  Receipt Date: 20240801
  Transmission Date: 20241016
  Serious: No
  Sender: ALKEM
  Company Number: MX-ALKEM LABORATORIES LIMITED-MX-ALKEM-2023-13137

PATIENT
  Age: 59 Year
  Sex: Male

DRUGS (3)
  1. ITRACONAZOLE [Interacting]
     Active Substance: ITRACONAZOLE
     Indication: Acute myeloid leukaemia
     Dosage: 100 MILLIGRAM, BID, FROM DAYS 1-21, (INDUCTION THERAPY)
     Route: 048
  2. AZACITIDINE [Interacting]
     Active Substance: AZACITIDINE
     Indication: Acute myeloid leukaemia
     Dosage: 100 MILLIGRAM, OD, FROM DAYS 1-7 (INDUCTION THERAPY)
     Route: 058
  3. VENETOCLAX [Interacting]
     Active Substance: VENETOCLAX
     Indication: Acute myeloid leukaemia
     Dosage: 100 MILLIGRAM, OD, LOW-DOSE FROM DAYS 1-21 MAXIMUM OF TWO 21-DAY CYCLES (INDUCTION THERAPY)
     Route: 048

REACTIONS (2)
  - Anaemia [Unknown]
  - Drug interaction [Unknown]
